FAERS Safety Report 7243601-8 (Version None)
Quarter: 2011Q1

REPORT INFORMATION
  Report Type: 
  Country: None (occurrence: None)
  Receive Date: 20110125
  Receipt Date: 20110114
  Transmission Date: 20110831
  Serious: Yes (Other)
  Sender: FDA-Public Use
  Company Number: PHHY2011DE03749

PATIENT
  Sex: Male

DRUGS (2)
  1. RASILEZ [Suspect]
     Indication: HYPERTENSION
     Dosage: 1 DF, QD
     Route: 048
     Dates: start: 20110107
  2. NIFEDIPINE [Concomitant]
     Indication: HYPERTENSION
     Dosage: UNK
     Route: 048
     Dates: start: 20090101

REACTIONS (6)
  - DRUG INEFFECTIVE [None]
  - BRONCHIAL OBSTRUCTION [None]
  - LIP SWELLING [None]
  - CONCOMITANT DISEASE AGGRAVATED [None]
  - BLOOD PRESSURE INCREASED [None]
  - RESTLESSNESS [None]
